FAERS Safety Report 18372457 (Version 6)
Quarter: 2022Q1

REPORT INFORMATION
  Report Type: Spontaneous
  Country: US (occurrence: US)
  Receive Date: 20201012
  Receipt Date: 20220107
  Transmission Date: 20220424
  Serious: Yes (Other)
  Sender: FDA-Public Use
  Company Number: US-PFIZER INC-2019186594

PATIENT
  Age: 79 Year
  Sex: Female
  Weight: 72.57 kg

DRUGS (6)
  1. LYRICA [Suspect]
     Active Substance: PREGABALIN
     Indication: Fibromyalgia
     Dosage: 150 MG, 2X/DAY
     Route: 048
  2. LYRICA [Suspect]
     Active Substance: PREGABALIN
     Indication: Pain
     Dosage: 100 MG, 2X/DAY (100MG,TWICE A DAY MORNING AND EVENING)
  3. LYRICA [Suspect]
     Active Substance: PREGABALIN
     Indication: Spinal cord injury
  4. LYRICA [Suspect]
     Active Substance: PREGABALIN
     Indication: Arthritis
  5. HYDROCODONE [Concomitant]
     Active Substance: HYDROCODONE
     Indication: Breakthrough pain
     Dosage: 5 MG, 2X/DAY
  6. HYDROCODONE [Concomitant]
     Active Substance: HYDROCODONE
     Dosage: UNK, WITH REDUCED DOSE

REACTIONS (9)
  - Seizure [Unknown]
  - Memory impairment [Unknown]
  - Anxiety [Unknown]
  - Musculoskeletal stiffness [Unknown]
  - Dyskinesia [Unknown]
  - Tremor [Unknown]
  - Nerve injury [Unknown]
  - Malaise [Unknown]
  - Drug ineffective [Unknown]
